FAERS Safety Report 4756081-9 (Version None)
Quarter: 2005Q3

REPORT INFORMATION
  Report Type: 
  Country: None (occurrence: None)
  Receive Date: 20050830
  Receipt Date: 20050509
  Transmission Date: 20060218
  Serious: Yes (Hospitalization)
  Sender: FDA-Public Use
  Company Number: PHHO2005US08249

PATIENT
  Age: 27 Year
  Sex: Male
  Weight: 59 kg

DRUGS (10)
  1. NEORAL [Suspect]
     Indication: RENAL TRANSPLANT
     Dosage: 3 MG, BID
     Route: 048
     Dates: start: 20050204
  2. PREDNISONE [Concomitant]
     Indication: RENAL TRANSPLANT
     Dosage: 5 MG, QD
     Route: 048
     Dates: start: 20050407
  3. INSULIN [Concomitant]
     Dates: start: 20040101
  4. CLONIDINE [Concomitant]
     Dosage: 0.2 MG, TID
     Route: 048
     Dates: start: 20050201
  5. MINOXIDIL [Concomitant]
     Dosage: 2.5 MG, BID
     Route: 048
     Dates: start: 20050201
  6. TOPROL-XL [Concomitant]
     Dosage: 50 MG, BID
     Route: 048
     Dates: start: 20050125
  7. ZANTAC [Concomitant]
     Dosage: 300 MG, QD
     Route: 048
     Dates: start: 20050208
  8. BACTRIM [Concomitant]
     Dosage: 1 TAB 2 X WEEK
     Route: 048
     Dates: start: 20050207
  9. MYFORTIC [Suspect]
     Indication: RENAL TRANSPLANT
     Dosage: 720 MG, BID
     Route: 048
     Dates: start: 20050203, end: 20050603
  10. LIPITOR [Concomitant]
     Dosage: 10 MG, QD
     Route: 048
     Dates: start: 20050521

REACTIONS (13)
  - ACCELERATED HYPERTENSION [None]
  - BLOOD CREATININE INCREASED [None]
  - DEHYDRATION [None]
  - EROSIVE OESOPHAGITIS [None]
  - HAEMATEMESIS [None]
  - HYDRONEPHROSIS [None]
  - HYPERTENSION [None]
  - IMPAIRED GASTRIC EMPTYING [None]
  - NAUSEA [None]
  - OESOPHAGEAL CANDIDIASIS [None]
  - OESOPHAGEAL DISORDER [None]
  - PYREXIA [None]
  - VOMITING [None]
